FAERS Safety Report 9530666 (Version 1)
Quarter: 2013Q3

REPORT INFORMATION
  Report Type: Not Available
  Country: US (occurrence: US)
  Receive Date: 20130918
  Receipt Date: 20130918
  Transmission Date: 20140515
  Serious: Yes (Other)
  Sender: FDA-Public Use
  Company Number: US-LUPIN PHARMACEUTICALS INC.-E2B_00001261

PATIENT
  Age: 10 Year
  Sex: Female

DRUGS (1)
  1. SUPRAX 200 MG/5 ML [Suspect]
     Indication: URINARY TRACT INFECTION
     Dosage: 400MG/10ML
     Dates: start: 20130828, end: 20130831

REACTIONS (1)
  - Pancreatitis [Unknown]
